FAERS Safety Report 5818931-4 (Version None)
Quarter: 2008Q3

REPORT INFORMATION
  Report Type: 
  Country: None (occurrence: None)
  Receive Date: 20080723
  Receipt Date: 20080712
  Transmission Date: 20090109
  Serious: Yes (Hospitalization)
  Sender: FDA-Public Use
  Company Number: US-BAYER-200812859BCC

PATIENT
  Age: 41 Year
  Sex: Female
  Weight: 59 kg

DRUGS (2)
  1. ALKA-SELTZER PLUS FLU EFFERVESCENT TABLETS [Suspect]
     Indication: NASOPHARYNGITIS
     Dosage: TOTAL DAILY DOSE: 4 DF
     Route: 048
     Dates: start: 20080710, end: 20080711
  2. VYTORIN [Concomitant]

REACTIONS (7)
  - BURNING SENSATION [None]
  - COUGH [None]
  - FEELING HOT [None]
  - HYPERSENSITIVITY [None]
  - PRURITUS GENERALISED [None]
  - PYREXIA [None]
  - RASH ERYTHEMATOUS [None]
